FAERS Safety Report 21183231 (Version 2)
Quarter: 2022Q3

REPORT INFORMATION
  Report Type: Spontaneous
  Country: DE (occurrence: DE)
  Receive Date: 20220808
  Receipt Date: 20220830
  Transmission Date: 20221026
  Serious: Yes (Hospitalization)
  Sender: FDA-Public Use
  Company Number: DE-ALKEM LABORATORIES LIMITED-DE-ALKEM-2022-07882

PATIENT
  Age: 66 Year
  Sex: Female
  Weight: 62 kg

DRUGS (21)
  1. ASPIRIN [Suspect]
     Active Substance: ASPIRIN
     Indication: Anticoagulant therapy
     Dosage: 100 MILLIGRAM EVERY 1 DAY (TABLET UNCOATED, ORAL)
     Route: 048
     Dates: start: 20220311
  2. ASPIRIN [Suspect]
     Active Substance: ASPIRIN
     Indication: Condition aggravated
     Dosage: 100 MILLIGRAM EVERY 1 DAY
     Route: 048
     Dates: start: 20220705
  3. ATORVASTATIN CALCIUM [Suspect]
     Active Substance: ATORVASTATIN CALCIUM
     Indication: Condition aggravated
     Dosage: 40 MILLIGRAM EVERY 1 DAY (TABLET UNCOATED, ORAL)
     Route: 048
     Dates: start: 20220311
  4. ATORVASTATIN CALCIUM [Suspect]
     Active Substance: ATORVASTATIN CALCIUM
     Indication: Hypercholesterolaemia
     Dosage: 40 MILLIGRAM EVERY 1 DAY
     Route: 048
     Dates: start: 20220704
  5. EZETIMIBE [Suspect]
     Active Substance: EZETIMIBE
     Indication: Hypercholesterolaemia
     Dosage: 10 MILLIGRAM EVERY 1 DAY (TABLET UNCOATED, ORAL)
     Route: 048
     Dates: start: 20220311
  6. EZETIMIBE [Suspect]
     Active Substance: EZETIMIBE
     Indication: Condition aggravated
     Dosage: 10 MILLIGRAM EVERY 1 DAY
     Route: 048
     Dates: start: 20220704
  7. METOPROLOL SUCCINATE [Suspect]
     Active Substance: METOPROLOL SUCCINATE
     Indication: Condition aggravated
     Dosage: 47.5 MILLIGRAM EVERY 1 DAY (TABLET UNCOATED, ORAL)
     Route: 048
     Dates: start: 20220311
  8. METOPROLOL SUCCINATE [Suspect]
     Active Substance: METOPROLOL SUCCINATE
     Indication: Insomnia
     Dosage: 47.5 MILLIGRAM EVERY 1 DAY
     Route: 048
     Dates: start: 20220705
  9. METOPROLOL SUCCINATE [Suspect]
     Active Substance: METOPROLOL SUCCINATE
     Indication: Hypertension
  10. CANDESARTAN [Suspect]
     Active Substance: CANDESARTAN
     Indication: Condition aggravated
     Dosage: 32 MILLIGRAM EVERY 1 DAY (TABLET UNCOATED, ORAL)
     Route: 048
     Dates: start: 20220311
  11. CANDESARTAN [Suspect]
     Active Substance: CANDESARTAN
     Indication: Hypertension
     Dosage: 0.16 MILLIGRAM EVERY 1 DAY
     Route: 048
     Dates: start: 20220705
  12. CANDESARTAN [Suspect]
     Active Substance: CANDESARTAN
     Dosage: 32 MILLIGRAM EVERY 1 DAY
     Route: 048
     Dates: start: 20220707
  13. CARBOPLATIN [Suspect]
     Active Substance: CARBOPLATIN
     Indication: Non-small cell lung cancer stage III
     Dosage: 1 TOTAL (INJECTION)
     Route: 042
     Dates: start: 20220419, end: 20220419
  14. CARBOPLATIN [Suspect]
     Active Substance: CARBOPLATIN
     Dosage: EVERY CYCLE
     Route: 042
     Dates: start: 20220509, end: 20220614
  15. HYDROCHLOROTHIAZIDE [Suspect]
     Active Substance: HYDROCHLOROTHIAZIDE
     Indication: Condition aggravated
     Dosage: 25 MILLIGRAM EVERY 1 DAY
     Route: 048
     Dates: start: 20220311
  16. HYDROCHLOROTHIAZIDE [Suspect]
     Active Substance: HYDROCHLOROTHIAZIDE
     Indication: Hypertension
     Dosage: 25 MILLIGRAM EVERY 1 DAY
     Route: 048
     Dates: start: 20220704
  17. INDACATEROL [Suspect]
     Active Substance: INDACATEROL
     Indication: Condition aggravated
     Dosage: 85 MICROGRAM EVERY 1 DAY
     Dates: start: 20220705
  18. PACLITAXEL [Suspect]
     Active Substance: PACLITAXEL
     Indication: Non-small cell lung cancer stage III
     Dosage: 200 MILLILITRE PER SQUARE METRE(1 TOTAL) INJECTION
     Route: 042
     Dates: start: 20220419, end: 20220419
  19. PACLITAXEL [Suspect]
     Active Substance: PACLITAXEL
     Dosage: EVERY CYCLE
     Route: 042
     Dates: start: 20220509, end: 20220614
  20. PEMBROLIZUMAB [Suspect]
     Active Substance: PEMBROLIZUMAB
     Indication: Non-small cell lung cancer stage III
     Dosage: UNK
     Route: 065
  21. ZOPICLONE [Concomitant]
     Active Substance: ZOPICLONE
     Indication: Insomnia
     Dosage: 3.75 MILLIGRAM EVERY 1 DAY
     Route: 048
     Dates: start: 20220607

REACTIONS (3)
  - Chronic obstructive pulmonary disease [Recovered/Resolved]
  - Radiation pneumonitis [Recovered/Resolved]
  - Product use in unapproved indication [Unknown]

NARRATIVE: CASE EVENT DATE: 20220629
